FAERS Safety Report 18015167 (Version 1)
Quarter: 2020Q3

REPORT INFORMATION
  Report Type: Spontaneous
  Country: US (occurrence: US)
  Receive Date: 20200713
  Receipt Date: 20200713
  Transmission Date: 20201103
  Serious: Yes (Other)
  Sender: FDA-Public Use
  Company Number: US-FOUNDATIONCONSUMERHC-2020-US-012667

PATIENT
  Age: 29 Year
  Sex: Female
  Weight: 92.99 kg

DRUGS (2)
  1. HAIR, SKIN AND NAILS VITAMIN [Concomitant]
  2. LEVONORGESTREL (UNSPECIFIED) [Suspect]
     Active Substance: LEVONORGESTREL
     Indication: POST COITAL CONTRACEPTION
     Dosage: UNSPECIFIED LEVONORGESTREL IN 2015 AND 1.5MG PLAN B ON 05?JUN?2020
     Route: 048
     Dates: start: 2015, end: 20200605

REACTIONS (5)
  - Vaginal haemorrhage [Recovered/Resolved]
  - Vomiting [Not Recovered/Not Resolved]
  - Pregnancy after post coital contraception [Unknown]
  - Drug ineffective [Unknown]
  - Nausea [Not Recovered/Not Resolved]

NARRATIVE: CASE EVENT DATE: 2015
